FAERS Safety Report 25301922 (Version 1)
Quarter: 2025Q2

REPORT INFORMATION
  Report Type: Spontaneous
  Country: US (occurrence: None)
  Receive Date: 20250512
  Receipt Date: 20250512
  Transmission Date: 20250717
  Serious: Yes (Hospitalization)
  Sender: FDA-CTU
  Company Number: None

PATIENT
  Age: 6 Year
  Sex: Female
  Weight: 20 kg

DRUGS (3)
  1. VIDAZA [Suspect]
     Active Substance: AZACITIDINE
  2. Venclexta - dispensed by another pharmacy [Concomitant]
  3. REVUFORJ [Concomitant]
     Active Substance: REVUMENIB CITRATE
     Dates: start: 20250506

REACTIONS (6)
  - Nausea [None]
  - Pyrexia [None]
  - Flushing [None]
  - Petechiae [None]
  - Frustration tolerance decreased [None]
  - Affective disorder [None]

NARRATIVE: CASE EVENT DATE: 20250510
